FAERS Safety Report 6532319-2 (Version None)
Quarter: 2010Q1

REPORT INFORMATION
  Report Type: 
  Country: None (occurrence: None)
  Receive Date: 20100108
  Receipt Date: 20091229
  Transmission Date: 20100710
  Serious: Yes (Hospitalization, Disabling)
  Sender: FDA-Public Use
  Company Number: FR-ABBOTT-09P-056-0616780-00

PATIENT
  Age: 38 Year
  Sex: Female

DRUGS (1)
  1. LIPANTHYL [Suspect]
     Indication: DYSLIPIDAEMIA
     Route: 048
     Dates: end: 20091012

REACTIONS (1)
  - ABORTION SPONTANEOUS [None]
